FAERS Safety Report 5095778-0 (Version None)
Quarter: 2006Q3

REPORT INFORMATION
  Report Type: 
  Country: None (occurrence: None)
  Receive Date: 20060905
  Receipt Date: 20060828
  Transmission Date: 20061208
  Serious: Yes (Other)
  Sender: FDA-Public Use
  Company Number: DE-JNJFOC-20060804898

PATIENT
  Age: 46 Year
  Sex: Male
  Weight: 86 kg

DRUGS (2)
  1. REMICADE [Suspect]
     Route: 042
  2. REMICADE [Suspect]
     Indication: PSORIASIS
     Dosage: FIFTH INFUSION
     Route: 042

REACTIONS (4)
  - ARTHRALGIA [None]
  - FATIGUE [None]
  - MUSCLE ATROPHY [None]
  - MYALGIA [None]
